FAERS Safety Report 6148226-3 (Version None)
Quarter: 2009Q2

REPORT INFORMATION
  Report Type: 
  Country: None (occurrence: None)
  Receive Date: 20090408
  Receipt Date: 20090331
  Transmission Date: 20091009
  Serious: Yes (Death)
  Sender: FDA-Public Use
  Company Number: FR-ELI_LILLY_AND_COMPANY-FR200903007640

PATIENT
  Age: 68 Year
  Sex: Male

DRUGS (2)
  1. CIALIS [Suspect]
     Dosage: 20 MG, EPISODICALLY
     Route: 048
  2. CIALIS [Suspect]
     Dosage: 20 MG, DAILY (1/D)
     Route: 048
     Dates: start: 20090125, end: 20090125

REACTIONS (6)
  - BLOOD PRESSURE DECREASED [None]
  - PROSTATITIS [None]
  - PYREXIA [None]
  - SUDDEN DEATH [None]
  - URINARY TRACT DISORDER [None]
  - URINARY TRACT PAIN [None]
